FAERS Safety Report 10192133 (Version 1)
Quarter: 2014Q2

REPORT INFORMATION
  Report Type: Report from Study
  Country: NL (occurrence: NL)
  Receive Date: 20140523
  Receipt Date: 20140523
  Transmission Date: 20141212
  Serious: Yes (Other)
  Sender: FDA-Public Use
  Company Number: NL-BAXTER-2014BAX026717

PATIENT
  Sex: 0

DRUGS (3)
  1. ENDOXAN OMHULDE TABLET, OMHULDE TABLETTEN 50 MG [Suspect]
     Indication: PLASMA CELL MYELOMA
     Route: 048
  2. LENALIDOMIDE [Suspect]
     Indication: PLASMA CELL MYELOMA
     Dosage: ON DAYS 1-21 OF A 28 DAY CYCLE
     Route: 065
  3. PREDNISONE [Suspect]
     Indication: PLASMA CELL MYELOMA
     Dosage: CONTINUOUSLY
     Route: 065

REACTIONS (1)
  - Disease progression [Unknown]
